FAERS Safety Report 10880217 (Version 1)
Quarter: 2015Q1

REPORT INFORMATION
  Report Type: Spontaneous
  Country: US (occurrence: US)
  Receive Date: 20150302
  Receipt Date: 20150302
  Transmission Date: 20150721
  Serious: No
  Sender: FDA-Public Use
  Company Number: US-PFIZER INC-2015072082

PATIENT
  Age: 84 Year
  Sex: Female
  Weight: 82 kg

DRUGS (3)
  1. ADVIL [Suspect]
     Active Substance: IBUPROFEN
     Dosage: 2 TABLETS, DAILY
     Dates: start: 20150215, end: 20150217
  2. ADVIL PM [Suspect]
     Active Substance: DIPHENHYDRAMINE CITRATE\IBUPROFEN
     Dosage: 1 DF, DAILY (AT BEDTIME)
  3. ALEVE [Suspect]
     Active Substance: NAPROXEN SODIUM
     Dosage: UNK

REACTIONS (5)
  - Lip swelling [Recovered/Resolved]
  - Sinus congestion [Not Recovered/Not Resolved]
  - Hypersensitivity [Unknown]
  - Swelling face [Recovered/Resolved]
  - Nasal congestion [Not Recovered/Not Resolved]

NARRATIVE: CASE EVENT DATE: 20150215
